FAERS Safety Report 20820396 (Version 1)
Quarter: 2022Q2

REPORT INFORMATION
  Report Type: Report from Study
  Country: IT (occurrence: IT)
  Receive Date: 20220512
  Receipt Date: 20220512
  Transmission Date: 20220721
  Serious: Yes (Hospitalization, Other)
  Sender: FDA-Public Use
  Company Number: IT-CELGENE-ITA-20220201875

PATIENT
  Sex: Male
  Weight: 74.3 kg

DRUGS (27)
  1. POMALIDOMIDE [Suspect]
     Active Substance: POMALIDOMIDE
     Indication: Plasma cell myeloma
     Dosage: FREQUENCY TEXT: NOT PROVIDED
     Route: 048
     Dates: start: 20210113, end: 20210302
  2. DEXAMETHASONE [Suspect]
     Active Substance: DEXAMETHASONE
     Indication: Plasma cell myeloma
     Dosage: FREQUENCY TEXT: NOT PROVIDED
     Route: 048
     Dates: start: 20210113, end: 20210304
  3. CILTACABTAGENE AUTOLEUCEL [Suspect]
     Active Substance: CILTACABTAGENE AUTOLEUCEL
     Indication: Plasma cell myeloma
     Dosage: FREQUENCY TEXT: NOT PROVIDED
     Route: 042
     Dates: start: 20210331, end: 20210331
  4. DARATUMUMAB [Suspect]
     Active Substance: DARATUMUMAB
     Indication: Plasma cell myeloma
     Dosage: FREQUENCY TEXT: NOT PROVIDEDD
     Route: 058
     Dates: start: 20210113, end: 20210303
  5. CYCLOPHOSPHAMIDE [Suspect]
     Active Substance: CYCLOPHOSPHAMIDE
     Indication: Plasma cell myeloma
     Dosage: FREQUENCY TEXT: NOT PROVIDED
     Route: 042
     Dates: start: 20210326, end: 20210328
  6. FLUDARABINE [Suspect]
     Active Substance: FLUDARABINE PHOSPHATE
     Indication: Plasma cell myeloma
     Dosage: FREQUENCY TEXT: NOT PROVIDED
     Route: 042
     Dates: start: 20210326, end: 20210328
  7. ACETAMINOPHEN [Concomitant]
     Active Substance: ACETAMINOPHEN
     Indication: Flank pain
     Dosage: FREQUENCY TEXT: AS REQUIRED
     Route: 048
     Dates: start: 20210430
  8. FENTANYL [Concomitant]
     Active Substance: FENTANYL
     Indication: Flank pain
     Dosage: FREQUENCY TEXT: CONTINOUS
     Route: 062
     Dates: start: 20210506
  9. ACETAMINOPHEN\OXYCODONE HYDROCHLORIDE [Concomitant]
     Active Substance: ACETAMINOPHEN\OXYCODONE HYDROCHLORIDE
     Indication: Flank pain
     Dosage: FREQUENCY TEXT: AS REQUIRED
     Route: 048
     Dates: start: 20210506
  10. PANTOPRAZOLE [Concomitant]
     Active Substance: PANTOPRAZOLE
     Indication: Prophylaxis
     Route: 048
     Dates: start: 20210327
  11. LEVETIRACETAM [Concomitant]
     Active Substance: LEVETIRACETAM
     Indication: Prophylaxis
     Route: 048
     Dates: start: 20210329
  12. LEVETIRACETAM [Concomitant]
     Active Substance: LEVETIRACETAM
     Route: 048
     Dates: start: 20210902
  13. BACTRIM [Concomitant]
     Active Substance: SULFAMETHOXAZOLE\TRIMETHOPRIM
     Indication: Infection prophylaxis
     Dosage: 800/160 MG
     Route: 065
     Dates: start: 20210113
  14. BACTRIM [Concomitant]
     Active Substance: SULFAMETHOXAZOLE\TRIMETHOPRIM
     Dosage: DOSE: 800/160 MG
     Dates: start: 20210421
  15. ACYCLOVIR [Concomitant]
     Active Substance: ACYCLOVIR
     Indication: Infection prophylaxis
     Dosage: 800 MILLIGRAM
     Route: 048
     Dates: start: 20210810
  16. AMLODIPINE [Concomitant]
     Active Substance: AMLODIPINE BESYLATE
     Indication: Hypertension
     Route: 048
     Dates: start: 20210810
  17. GLIMEPIRIDE [Concomitant]
     Active Substance: GLIMEPIRIDE
     Indication: Diabetes mellitus
     Route: 048
     Dates: start: 20210811
  18. Insulina Aspart [Concomitant]
     Indication: Diabetes mellitus
     Dosage: DOSE: 300 UNITS NOS
     Route: 058
     Dates: start: 20210812
  19. INSULIN GLARGINE [Concomitant]
     Active Substance: INSULIN GLARGINE
     Indication: Diabetes mellitus
     Dosage: DOSE: 1000 UNITS NOS
     Route: 058
     Dates: start: 20210812
  20. RAMIPRIL [Concomitant]
     Active Substance: RAMIPRIL
     Indication: Prophylaxis
     Route: 048
     Dates: start: 20210816
  21. FOLIC ACID [Concomitant]
     Active Substance: FOLIC ACID
     Indication: Nutritional supplementation
     Route: 048
     Dates: start: 20210901
  22. MEDROL [Concomitant]
     Active Substance: METHYLPREDNISOLONE
     Indication: Facial paralysis
     Route: 048
     Dates: start: 20210902
  23. MEDROL [Concomitant]
     Active Substance: METHYLPREDNISOLONE
     Indication: Polyneuropathy
     Route: 048
     Dates: start: 20211104
  24. Lysine Salicylate [Concomitant]
     Indication: Thrombosis prophylaxis
     Route: 048
  25. FUROSEMIDE [Concomitant]
     Active Substance: FUROSEMIDE
     Indication: Hypertension
     Route: 048
  26. HUMAN IMMUNOGLOBULIN G [Concomitant]
     Active Substance: HUMAN IMMUNOGLOBULIN G
     Indication: Hypogammaglobulinaemia
     Route: 042
     Dates: start: 20211224, end: 20211228
  27. HUMAN IMMUNOGLOBULIN G [Concomitant]
     Active Substance: HUMAN IMMUNOGLOBULIN G
     Route: 042
     Dates: start: 20211228

REACTIONS (1)
  - Colitis [Recovered/Resolved]

NARRATIVE: CASE EVENT DATE: 20211221
